FAERS Safety Report 5134620-6 (Version None)
Quarter: 2006Q4

REPORT INFORMATION
  Report Type: 
  Country: None (occurrence: None)
  Receive Date: 20061025
  Receipt Date: 20061004
  Transmission Date: 20070319
  Serious: Yes (Hospitalization)
  Sender: FDA-Public Use
  Company Number: 2006-04957

PATIENT
  Sex: Male

DRUGS (6)
  1. CHLORPROMAZINE [Suspect]
     Indication: DRUG USE FOR UNKNOWN INDICATION
     Dosage: 1200MG UNKNOWN
     Route: 048
     Dates: end: 20060910
  2. CHLORPROMAZINE [Suspect]
     Route: 042
     Dates: start: 20060101
  3. CLONAZEPAM [Suspect]
     Indication: DRUG USE FOR UNKNOWN INDICATION
     Dosage: 2TAB TWICE PER DAY
     Route: 048
  4. LAMICTAL [Concomitant]
  5. NASONEX [Concomitant]
  6. SINGULAIR [Concomitant]

REACTIONS (2)
  - AGGRESSION [None]
  - DRUG SCREEN POSITIVE [None]
